FAERS Safety Report 4789369-6 (Version None)
Quarter: 2005Q3

REPORT INFORMATION
  Report Type: 
  Country: None (occurrence: None)
  Receive Date: 20050929
  Receipt Date: 20050729
  Transmission Date: 20060218
  Serious: No
  Sender: FDA-Public Use
  Company Number: 05P-163-0307068-00

PATIENT
  Age: 87 Year
  Sex: Female
  Weight: 49.8957 kg

DRUGS (7)
  1. HUMIRA [Suspect]
     Indication: RHEUMATOID ARTHRITIS
     Dosage: 40 MG, 1 IN 2 WK, SUBCUTANEOUS
     Route: 058
     Dates: start: 20050501
  2. METOPROLOL [Concomitant]
  3. FOLIC ACID [Concomitant]
  4. ATORVASTATIN [Concomitant]
  5. METHOTREXATE [Concomitant]
  6. ESOMEPRAZOLE [Concomitant]
  7. CALCIUM GLUCONATE [Concomitant]

REACTIONS (2)
  - DRY SKIN [None]
  - HEADACHE [None]
